FAERS Safety Report 9530617 (Version 24)
Quarter: 2020Q2

REPORT INFORMATION
  Report Type: Report from Study
  Country: CA (occurrence: CA)
  Receive Date: 20130918
  Receipt Date: 20200529
  Transmission Date: 20200714
  Serious: Yes (Hospitalization, Other)
  Sender: FDA-Public Use
  Company Number: CA-ROCHE-1107891

PATIENT
  Age: 71 Year
  Sex: Male
  Weight: 80.5 kg

DRUGS (19)
  1. ACTEMRA [Suspect]
     Active Substance: TOCILIZUMAB
     Route: 042
     Dates: start: 20150430, end: 20160714
  2. METFORMIN [Concomitant]
     Active Substance: METFORMIN HYDROCHLORIDE
     Route: 065
  3. PRO-METFORMIN [Concomitant]
     Active Substance: METFORMIN HYDROCHLORIDE
  4. ACTEMRA [Suspect]
     Active Substance: TOCILIZUMAB
     Route: 042
     Dates: start: 20190403
  5. GLUCOPHAGE [METFORMIN] [Concomitant]
     Indication: DIABETES MELLITUS
     Route: 048
  6. ACTEMRA [Suspect]
     Active Substance: TOCILIZUMAB
     Route: 042
     Dates: start: 20141113
  7. ACTEMRA [Suspect]
     Active Substance: TOCILIZUMAB
     Route: 042
     Dates: start: 201903
  8. ACTEMRA [Suspect]
     Active Substance: TOCILIZUMAB
     Route: 042
     Dates: start: 20190403
  9. FOSAVANCE [Concomitant]
     Active Substance: ALENDRONATE SODIUM\CHOLECALCIFEROL
  10. PREDNISONE. [Concomitant]
     Active Substance: PREDNISONE
  11. ACTEMRA [Suspect]
     Active Substance: TOCILIZUMAB
     Route: 042
     Dates: start: 20140227, end: 20140918
  12. ACTEMRA [Suspect]
     Active Substance: TOCILIZUMAB
     Route: 042
     Dates: start: 20170525
  13. ACTEMRA [Suspect]
     Active Substance: TOCILIZUMAB
     Dosage: INFUSIION NO. 74
     Route: 042
     Dates: start: 20180426
  14. ACTEMRA [Suspect]
     Active Substance: TOCILIZUMAB
     Route: 042
     Dates: start: 20190306
  15. PANTOPRAZOL [PANTOPRAZOLE] [Concomitant]
     Active Substance: PANTOPRAZOLE
  16. GLUCOPHAGE [METFORMIN] [Concomitant]
     Route: 048
  17. ACTEMRA [Suspect]
     Active Substance: TOCILIZUMAB
     Indication: RHEUMATOID ARTHRITIS
     Route: 042
     Dates: start: 20120627, end: 20130912
  18. ACTEMRA [Suspect]
     Active Substance: TOCILIZUMAB
     Route: 042
     Dates: start: 20131010, end: 20140130
  19. ACTEMRA [Suspect]
     Active Substance: TOCILIZUMAB
     Route: 042
     Dates: start: 20160811

REACTIONS (27)
  - Pneumonia [Recovered/Resolved]
  - Weight decreased [Unknown]
  - Musculoskeletal stiffness [Unknown]
  - Arthralgia [Not Recovered/Not Resolved]
  - Infusion related reaction [Unknown]
  - Body temperature decreased [Unknown]
  - Hand fracture [Unknown]
  - Pain [Unknown]
  - Cough [Unknown]
  - Nasopharyngitis [Not Recovered/Not Resolved]
  - Influenza [Unknown]
  - Joint effusion [Recovered/Resolved]
  - Weight increased [Recovered/Resolved]
  - Hypotension [Unknown]
  - Blood pressure fluctuation [Unknown]
  - Rhinorrhoea [Not Recovered/Not Resolved]
  - Cholelithiasis [Unknown]
  - Nasopharyngitis [Recovering/Resolving]
  - Blood pressure systolic increased [Unknown]
  - White blood cell count decreased [Unknown]
  - Fall [Unknown]
  - Blood pressure diastolic decreased [Unknown]
  - Skin laceration [Recovering/Resolving]
  - Disability assessment scale score increased [Unknown]
  - Heart rate decreased [Unknown]
  - Oropharyngeal pain [Recovering/Resolving]
  - Abdominal pain upper [Unknown]

NARRATIVE: CASE EVENT DATE: 20120812
